FAERS Safety Report 24319123 (Version 2)
Quarter: 2024Q3

REPORT INFORMATION
  Report Type: Spontaneous
  Country: US (occurrence: US)
  Receive Date: 20240913
  Receipt Date: 20240913
  Transmission Date: 20241017
  Serious: Yes (unspecified)
  Sender: LEITERS COMPOUNDING PHARMACY
  Company Number: US-Leiters-2159683

PATIENT
  Age: 51 Year
  Sex: Male
  Weight: 128.64 kg

DRUGS (1)
  1. BEVACIZUMAB [Suspect]
     Active Substance: BEVACIZUMAB
     Indication: Diabetic retinopathy
     Dates: start: 20240710, end: 20240710

REACTIONS (1)
  - Eye inflammation [Recovered/Resolved]

NARRATIVE: CASE EVENT DATE: 20240711
